FAERS Safety Report 11473638 (Version 2)
Quarter: 2021Q3

REPORT INFORMATION
  Report Type: Report from Study
  Country: US (occurrence: US)
  Receive Date: 20150908
  Receipt Date: 20210920
  Transmission Date: 20211014
  Serious: Yes (Other)
  Sender: FDA-Public Use
  Company Number: US-JAZZ-2014-US-017211

PATIENT
  Age: 32 Year
  Sex: Female
  Weight: 72.56 kg

DRUGS (7)
  1. XYREM [Suspect]
     Active Substance: SODIUM OXYBATE
     Indication: NARCOLEPSY
     Dosage: 2.25 GRAM, BID
     Route: 048
     Dates: start: 20141221, end: 201412
  2. XYREM [Suspect]
     Active Substance: SODIUM OXYBATE
     Dosage: 3 GRAM, BID
     Route: 048
     Dates: start: 20150106, end: 2015
  3. XYREM [Suspect]
     Active Substance: SODIUM OXYBATE
     Dosage: 2.25 GRAM, QD
     Route: 048
  4. XYREM [Suspect]
     Active Substance: SODIUM OXYBATE
     Dosage: DOSE ADJUSTMENTS
     Route: 048
     Dates: start: 2015, end: 2015
  5. XYREM [Suspect]
     Active Substance: SODIUM OXYBATE
     Dosage: 3.75 GRAM, BID
     Route: 048
     Dates: start: 2015
  6. XYREM [Suspect]
     Active Substance: SODIUM OXYBATE
     Indication: CATAPLEXY
     Dosage: 3 GRAM, BID
     Route: 048
     Dates: start: 201412, end: 20150104
  7. OXTELLAR XR [Concomitant]
     Active Substance: OXCARBAZEPINE
     Indication: EPILEPSY
     Dosage: 600 MG, BID
     Route: 048

REACTIONS (14)
  - Trismus [Unknown]
  - Dry skin [Unknown]
  - Hypotonia [Recovered/Resolved]
  - Weight decreased [Unknown]
  - Fall [Recovered/Resolved]
  - Nausea [Not Recovered/Not Resolved]
  - Salt intoxication [Recovered/Resolved]
  - Nasopharyngitis [Unknown]
  - Peripheral swelling [Unknown]
  - Generalised tonic-clonic seizure [Unknown]
  - Sleep apnoea syndrome [Unknown]
  - Speech disorder [Unknown]
  - Contusion [Unknown]
  - Paranoia [Recovered/Resolved]

NARRATIVE: CASE EVENT DATE: 201412
